FAERS Safety Report 16707045 (Version 1)
Quarter: 2019Q3

REPORT INFORMATION
  Report Type: Spontaneous
  Country: US (occurrence: US)
  Receive Date: 20190815
  Receipt Date: 20190815
  Transmission Date: 20191004
  Serious: No
  Sender: FDA-Public Use
  Company Number: US-THERAPEUTICSMD-2019TMD01536

PATIENT
  Age: 49 Year
  Sex: Female

DRUGS (1)
  1. BIJUVA [Suspect]
     Active Substance: ESTRADIOL\PROGESTERONE
     Dosage: UNK
     Dates: start: 201906, end: 20190615

REACTIONS (7)
  - Breast pain [Unknown]
  - Affect lability [Unknown]
  - Nipple pain [Unknown]
  - Dizziness [Unknown]
  - Crying [Unknown]
  - Confusional state [Unknown]
  - Balance disorder [Unknown]

NARRATIVE: CASE EVENT DATE: 201906
